FAERS Safety Report 20697047 (Version 1)
Quarter: 2022Q2

REPORT INFORMATION
  Report Type: Report from Study
  Country: US (occurrence: US)
  Receive Date: 20220411
  Receipt Date: 20220411
  Transmission Date: 20220721
  Serious: Yes (Other)
  Sender: FDA-Public Use
  Company Number: US-ELI_LILLY_AND_COMPANY-US202204000515

PATIENT

DRUGS (7)
  1. GEMCITABINE HYDROCHLORIDE [Suspect]
     Active Substance: GEMCITABINE HYDROCHLORIDE
     Indication: Bladder cancer
     Dosage: 1000 MG/M2, CYCLICAL
     Route: 042
  2. ATEZOLIZUMAB [Concomitant]
     Active Substance: ATEZOLIZUMAB
     Indication: Bladder cancer
     Dosage: 1200 MG, CYCLICAL
     Route: 042
  3. CISPLATIN [Concomitant]
     Active Substance: CISPLATIN
     Indication: Bladder cancer
     Dosage: 70 MG/M2, CYCLICAL
     Route: 042
  4. CISPLATIN [Concomitant]
     Active Substance: CISPLATIN
     Dosage: 35 MG/M2, CYCLICAL
     Route: 042
  5. DEXAMETHASONE [Concomitant]
     Active Substance: DEXAMETHASONE
     Indication: Product used for unknown indication
     Dosage: 12 MG, CYCLICAL
     Route: 042
  6. DEXAMETHASONE [Concomitant]
     Active Substance: DEXAMETHASONE
     Dosage: 4 MG, CYCLICAL
     Route: 048
  7. MANNITOL [Concomitant]
     Active Substance: MANNITOL
     Indication: Product used for unknown indication
     Dosage: UNK, UNKNOWN
     Route: 065

REACTIONS (1)
  - Pulmonary embolism [Unknown]
